FAERS Safety Report 20166966 (Version 1)
Quarter: 2021Q4

REPORT INFORMATION
  Report Type: Spontaneous
  Country: US (occurrence: US)
  Receive Date: 20211209
  Receipt Date: 20211209
  Transmission Date: 20220303
  Serious: No
  Sender: FDA-Public Use
  Company Number: US-PERRIGO-21US002441

PATIENT
  Age: 77 Year
  Sex: Male
  Weight: 88.435 kg

DRUGS (3)
  1. TRIAMCINOLONE ACETONIDE [Suspect]
     Active Substance: TRIAMCINOLONE ACETONIDE
     Indication: Morphoea
     Dosage: SMALL AMOUNT, BID, 3 DAYS WEEKLY
     Route: 061
     Dates: start: 202011, end: 20210202
  2. LOSARTAN [Concomitant]
     Active Substance: LOSARTAN
     Indication: Hypertension
     Dosage: UNKNOWN, UNKNOWN
     Route: 065
  3. OMEPRAZOLE [Concomitant]
     Active Substance: OMEPRAZOLE
     Indication: Gastrooesophageal reflux disease
     Dosage: 40 MG, UNKNOWN
     Route: 065

REACTIONS (1)
  - Rash [Not Recovered/Not Resolved]

NARRATIVE: CASE EVENT DATE: 20210203
